FAERS Safety Report 11216257 (Version 2)
Quarter: 2017Q1

REPORT INFORMATION
  Report Type: Spontaneous
  Country: US (occurrence: US)
  Receive Date: 20150624
  Receipt Date: 20170322
  Transmission Date: 20170428
  Serious: Yes (Other)
  Sender: FDA-Public Use
  Company Number: US-ELI_LILLY_AND_COMPANY-US201506006868

PATIENT
  Sex: Female

DRUGS (1)
  1. CYMBALTA [Suspect]
     Active Substance: DULOXETINE HYDROCHLORIDE
     Indication: DEPRESSION
     Dosage: 60 MG, QD
     Route: 065
     Dates: start: 200401, end: 201408

REACTIONS (13)
  - Vertigo [Unknown]
  - Anxiety [Unknown]
  - Drug withdrawal syndrome [Unknown]
  - Mood swings [Unknown]
  - Headache [Unknown]
  - Diarrhoea [Unknown]
  - Photosensitivity reaction [Unknown]
  - Vomiting [Unknown]
  - Paraesthesia [Unknown]
  - Nightmare [Unknown]
  - Affect lability [Unknown]
  - Nausea [Unknown]
  - Dizziness [Unknown]
